FAERS Safety Report 21622692 (Version 1)
Quarter: 2022Q4

REPORT INFORMATION
  Report Type: Other
  Country: BG (occurrence: BG)
  Receive Date: 20221121
  Receipt Date: 20221121
  Transmission Date: 20230113
  Serious: Yes (Hospitalization)
  Sender: FDA-Public Use
  Company Number: BG-BoehringerIngelheim-2022-BI-202506

PATIENT
  Age: 61 Year
  Sex: Female

DRUGS (1)
  1. ALTEPLASE [Suspect]
     Active Substance: ALTEPLASE
     Indication: Product used for unknown indication
     Route: 065

REACTIONS (3)
  - Hemiparesis [Unknown]
  - Cerebral infarction [Unknown]
  - NIH stroke scale abnormal [Unknown]

NARRATIVE: CASE EVENT DATE: 20220501
